FAERS Safety Report 8240498-4 (Version None)
Quarter: 2012Q1

REPORT INFORMATION
  Report Type: 
  Country: None (occurrence: None)
  Receive Date: 20120328
  Receipt Date: 20120319
  Transmission Date: 20120608
  Serious: Yes (Hospitalization)
  Sender: FDA-Public Use
  Company Number: US-ROCHE-1047943

PATIENT
  Age: 56 Year
  Sex: Female
  Weight: 54 kg

DRUGS (12)
  1. VICODIN [Concomitant]
  2. ASPIRIN [Concomitant]
  3. SIMVASTATIN [Concomitant]
  4. OMEPRAZOLE [Concomitant]
  5. SYNTHROID [Concomitant]
  6. TEGRETOL [Concomitant]
  7. AVASTIN [Suspect]
     Indication: OVARIAN EPITHELIAL CANCER
     Dosage: OVER 30-90 MIN ON DAY 1
     Route: 042
     Dates: start: 20110509
  8. FOLIC ACID [Concomitant]
  9. LASIX [Concomitant]
  10. PACLITAXEL [Suspect]
     Indication: OVARIAN EPITHELIAL CANCER
     Dosage: OVER 1 HOUR ON DAY 1,8 AND 15, PATIENT IS RECIEVING MAINTENANCE THERAPY
     Route: 042
     Dates: start: 20110509
  11. CARBOPLATIN [Suspect]
     Indication: OVARIAN EPITHELIAL CANCER
     Dosage: AUC 6 IP ON DAY 1, PATIENT IS RECIEVING MAINTENANCE THERAPY
     Route: 033
     Dates: start: 20110509
  12. BENICAR [Concomitant]

REACTIONS (1)
  - SMALL INTESTINAL OBSTRUCTION [None]
